FAERS Safety Report 7666102-1 (Version None)
Quarter: 2011Q3

REPORT INFORMATION
  Report Type: 
  Country: None (occurrence: None)
  Receive Date: 20110806
  Receipt Date: 20110415
  Transmission Date: 20111222
  Serious: No
  Sender: FDA-Public Use
  Company Number: US-ABBOTT-11P-163-0719726-00

PATIENT
  Age: 66 Year
  Sex: Female
  Weight: 63.56 kg

DRUGS (4)
  1. NIASPAN [Suspect]
     Dates: start: 20110301, end: 20110405
  2. NIASPAN [Suspect]
     Dates: start: 20110201, end: 20110301
  3. NIASPAN [Suspect]
     Indication: PRODUCT USED FOR UNKNOWN INDICATION
     Dates: start: 20110125, end: 20110201
  4. CARVEDILOL [Concomitant]
     Indication: PRODUCT USED FOR UNKNOWN INDICATION

REACTIONS (4)
  - VENTRICULAR EXTRASYSTOLES [None]
  - HEART RATE IRREGULAR [None]
  - EXTRASYSTOLES [None]
  - FLUSHING [None]
